FAERS Safety Report 8029972-3 (Version None)
Quarter: 2012Q1

REPORT INFORMATION
  Report Type: 
  Country: None (occurrence: None)
  Receive Date: 20120109
  Receipt Date: 20111227
  Transmission Date: 20120608
  Serious: Yes (Disabling)
  Sender: FDA-Public Use
  Company Number: JP-ASTELLAS-2011JP009677

PATIENT
  Age: 54 Year
  Sex: Female
  Weight: 50.8 kg

DRUGS (17)
  1. ALENDRONATE SODIUM [Concomitant]
     Dosage: 5 MG, UNKNOWN/D
     Route: 048
  2. MIZORIBINE [Concomitant]
     Indication: LUPUS NEPHRITIS
     Dosage: 250 MG, QOD
     Route: 048
     Dates: end: 20091117
  3. ROCALTROL [Concomitant]
     Dosage: 0.5 UG, UNKNOWN/D
     Route: 048
  4. INDERAL [Concomitant]
     Dosage: 10 MG, PRN
     Route: 048
     Dates: start: 20110406
  5. PREDNISOLONE [Suspect]
     Indication: LUPUS NEPHRITIS
     Dosage: 12.5 MG, UNKNOWN/D
     Route: 048
     Dates: end: 20100202
  6. JUVELA N [Concomitant]
     Dosage: 300 MG, UNKNOWN/D
     Route: 048
  7. TACROLIMUS [Suspect]
     Indication: LUPUS NEPHRITIS
     Dosage: 3 MG, UNKNOWN/D
     Route: 048
     Dates: start: 20091207
  8. PREDNISOLONE [Suspect]
     Dosage: 10 MG, UNKNOWN/D
     Route: 048
     Dates: start: 20100203, end: 20100511
  9. ASPIRIN [Concomitant]
     Indication: LUPUS NEPHRITIS
     Dosage: 100 MG, UNKNOWN/D
     Route: 048
  10. PREDNISOLONE [Suspect]
     Dosage: 7.5 MG, UNKNOWN/D
     Route: 048
     Dates: start: 20100512
  11. FAMOTIDINE [Concomitant]
     Dosage: 20 MG, UNKNOWN/D
     Route: 048
  12. ASPARA K [Concomitant]
     Dosage: 2700 MG, UNKNOWN/D
     Route: 048
  13. PERSANTIN [Concomitant]
     Indication: LUPUS NEPHRITIS
     Dosage: 300 MG, UNKNOWN/D
     Route: 048
  14. CALCIUM LACTATE [Concomitant]
     Dosage: 2000 MG, UNKNOWN/D
     Route: 048
  15. RHYTHMY [Concomitant]
     Dosage: 1 MG, UNKNOWN/D
     Route: 048
     Dates: end: 20091215
  16. LIPITOR [Concomitant]
     Dosage: 10 MG, UNKNOWN/D
     Route: 048
  17. ASPARA K [Concomitant]
     Dosage: 900 MG, UNKNOWN/D
     Route: 048

REACTIONS (2)
  - BRONCHITIS [None]
  - MYOCARDITIS [None]
